FAERS Safety Report 20008951 (Version 1)
Quarter: 2021Q4

REPORT INFORMATION
  Report Type: Spontaneous
  Country: JP (occurrence: JP)
  Receive Date: 20211028
  Receipt Date: 20211028
  Transmission Date: 20220303
  Serious: Yes (Hospitalization)
  Sender: FDA-Public Use
  Company Number: JP-EAGLE PHARMACEUTICALS, INC.-JP-2021EAG000225

PATIENT
  Age: 50 Year
  Sex: Female

DRUGS (12)
  1. BENDAMUSTINE HYDROCHLORIDE [Suspect]
     Active Substance: BENDAMUSTINE HYDROCHLORIDE
     Indication: Extranodal marginal zone B-cell lymphoma (MALT type)
     Dosage: UNK (CYCLE 1)
     Route: 041
  2. BENDAMUSTINE HYDROCHLORIDE [Suspect]
     Active Substance: BENDAMUSTINE HYDROCHLORIDE
     Dosage: UNK (CYCLE 2)
     Route: 041
  3. BENDAMUSTINE HYDROCHLORIDE [Suspect]
     Active Substance: BENDAMUSTINE HYDROCHLORIDE
     Dosage: UNK (CYCLE 3)
     Route: 041
  4. BENDAMUSTINE HYDROCHLORIDE [Suspect]
     Active Substance: BENDAMUSTINE HYDROCHLORIDE
     Dosage: UNK (CYCLE 4)
     Route: 041
  5. BENDAMUSTINE HYDROCHLORIDE [Suspect]
     Active Substance: BENDAMUSTINE HYDROCHLORIDE
     Dosage: UNK (CYCLE 5)
     Route: 041
  6. BENDAMUSTINE HYDROCHLORIDE [Suspect]
     Active Substance: BENDAMUSTINE HYDROCHLORIDE
     Dosage: UNK (CYCLE 6)
     Route: 041
  7. RITUXAN [Concomitant]
     Active Substance: RITUXIMAB
     Indication: Extranodal marginal zone B-cell lymphoma (MALT type)
     Dosage: UNK (CYCLE 1)
     Route: 041
  8. RITUXAN [Concomitant]
     Active Substance: RITUXIMAB
     Dosage: UNK (CYCLE 2)
     Route: 041
  9. RITUXAN [Concomitant]
     Active Substance: RITUXIMAB
     Dosage: UNK (CYCLE 3)
     Route: 041
  10. RITUXAN [Concomitant]
     Active Substance: RITUXIMAB
     Dosage: UNK (CYCLE 4)
     Route: 041
  11. RITUXAN [Concomitant]
     Active Substance: RITUXIMAB
     Dosage: UNK (CYCLE 5)
     Route: 041
  12. RITUXAN [Concomitant]
     Active Substance: RITUXIMAB
     Dosage: UNK (CYCLE 6)
     Route: 041

REACTIONS (1)
  - Progressive multifocal leukoencephalopathy [Not Recovered/Not Resolved]
